FAERS Safety Report 15278895 (Version 2)
Quarter: 2020Q4

REPORT INFORMATION
  Report Type: Spontaneous
  Country: US (occurrence: US)
  Receive Date: 20180815
  Receipt Date: 20201106
  Transmission Date: 20210113
  Serious: Yes (Disabling)
  Sender: FDA-Public Use
  Company Number: US-TEVA-2018-US-944352

PATIENT
  Age: 52 Year
  Sex: Female

DRUGS (12)
  1. VITAMIN B12 SUPPLEMENT [Concomitant]
  2. METHOCARBAMOL. [Concomitant]
     Active Substance: METHOCARBAMOL
     Dates: start: 2014, end: 2018
  3. NEURONTIN [Concomitant]
     Active Substance: GABAPENTIN
     Dates: start: 2014, end: 2018
  4. IRON SUPPLEMENT [Concomitant]
     Active Substance: IRON
  5. ASPIRIN LOW DOSE [Concomitant]
     Active Substance: ASPIRIN
     Dates: start: 2010
  6. DOCETAXEL SANDOZ [Suspect]
     Active Substance: DOCETAXEL
     Indication: BREAST CANCER FEMALE
     Dosage: DOSAGE: 165-167 MG; EVERY THREE WEEKS FOR 4 CYCLES
     Route: 065
     Dates: start: 20170629, end: 20170831
  7. CYTOXAN [Concomitant]
     Active Substance: CYCLOPHOSPHAMIDE
     Indication: BREAST CANCER FEMALE
     Dosage: FREQUENCY AS CYCLICAL, DOSAGE TEXT-EVERY THREE WEEKS FOR 4 CYCLE
     Dates: start: 20170629, end: 20170831
  8. NEULASTA [Concomitant]
     Active Substance: PEGFILGRASTIM
  9. VITAMIN D [Concomitant]
     Active Substance: VITAMIN D NOS
     Dates: start: 2014, end: 2018
  10. INDOMETHACIN. [Concomitant]
     Active Substance: INDOMETHACIN
     Dates: start: 2014, end: 2018
  11. MINOXIDIL. [Concomitant]
     Active Substance: MINOXIDIL
     Dates: start: 2017
  12. ARIMIDEX [Concomitant]
     Active Substance: ANASTROZOLE
     Dates: start: 2014, end: 2018

REACTIONS (4)
  - Hair colour changes [Not Recovered/Not Resolved]
  - Alopecia [Not Recovered/Not Resolved]
  - Hair texture abnormal [Not Recovered/Not Resolved]
  - Madarosis [Not Recovered/Not Resolved]

NARRATIVE: CASE EVENT DATE: 201707
